FAERS Safety Report 25079451 (Version 1)
Quarter: 2025Q1

REPORT INFORMATION
  Report Type: Spontaneous
  Country: JP (occurrence: JP)
  Receive Date: 20250314
  Receipt Date: 20250314
  Transmission Date: 20250408
  Serious: Yes (Other)
  Sender: PFIZER
  Company Number: JP-PFIZER INC-PV202500030723

PATIENT
  Age: 83 Year
  Sex: Female

DRUGS (1)
  1. SIROLIMUS [Suspect]
     Active Substance: SIROLIMUS
     Indication: Arteriovenous malformation
     Route: 048

REACTIONS (2)
  - Haemorrhagic arteriovenous malformation [Unknown]
  - Off label use [Unknown]
